FAERS Safety Report 5153318-1 (Version None)
Quarter: 2006Q4

REPORT INFORMATION
  Report Type: 
  Country: None (occurrence: None)
  Receive Date: 20061117
  Receipt Date: 20061114
  Transmission Date: 20070319
  Serious: Yes (Other)
  Sender: FDA-Public Use
  Company Number: US-BRISTOL-MYERS SQUIBB COMPANY-13577887

PATIENT
  Sex: Male

DRUGS (9)
  1. ERBITUX [Suspect]
     Indication: COLORECTAL CANCER
     Route: 042
  2. WARFARIN SODIUM [Suspect]
  3. OXALIPLATIN [Suspect]
     Indication: COLORECTAL CANCER
  4. LEUCOVORIN CALCIUM [Suspect]
     Indication: COLORECTAL CANCER
  5. FLUOROURACIL [Suspect]
     Indication: COLORECTAL CANCER
  6. KYTRIL [Concomitant]
     Indication: PREMEDICATION
  7. DEXAMETHASONE TAB [Concomitant]
     Indication: PREMEDICATION
  8. BENADRYL [Concomitant]
     Indication: PREMEDICATION
  9. ZANTAC [Concomitant]
     Indication: PREMEDICATION

REACTIONS (1)
  - INTERNATIONAL NORMALISED RATIO INCREASED [None]
